FAERS Safety Report 8792028 (Version 1)
Quarter: 2012Q4

REPORT INFORMATION
  Report Type: 
  Country: DE (occurrence: DE)
  Receive Date: 20120918
  Receipt Date: 20120918
  Transmission Date: 20130627
  Serious: Yes (Congenital Anomaly)
  Sender: FDA-Public Use
  Company Number: DE-ASTELLAS-2012EU006694

PATIENT

DRUGS (13)
  1. TACROLIMUS SYSTEMIC [Suspect]
     Indication: SYSTEMIC LUPUS ERYTHEMATOSUS
     Dosage: 6 mg, Unknown/D
     Route: 064
     Dates: start: 20111214, end: 20120320
  2. DELIX [Suspect]
     Indication: NEPHROTIC SYNDROME
     Dosage: 20 mg, Unknown/D
     Route: 064
     Dates: start: 20111214, end: 20120320
  3. INEGY [Suspect]
     Indication: HYPERCHOLESTEROLAEMIA
     Dosage: 40 mg, Unknown/D
     Route: 064
     Dates: start: 20111214, end: 20120320
  4. INEGY [Suspect]
     Dosage: 10 mg, Unknown/D
     Route: 064
  5. QUENSYL [Suspect]
     Indication: SYSTEMIC LUPUS ERYTHEMATOSUS
     Dosage: 200 mg, bid
     Route: 064
     Dates: start: 20111214, end: 20120320
  6. TOREM [Suspect]
     Indication: NEPHROTIC SYNDROME
     Dosage: 100 mg, Unknown/D
     Route: 064
     Dates: start: 20111214, end: 20120320
  7. RITUXIMAB [Suspect]
     Indication: SYSTEMIC LUPUS ERYTHEMATOSUS
     Dosage: UNK
     Route: 064
  8. CYCLOPHOSPHAMIDE [Suspect]
     Indication: SYSTEMIC LUPUS ERYTHEMATOSUS
     Dosage: 3000 mg, UNK
     Route: 064
     Dates: start: 201104, end: 201108
  9. CLEXANE [Concomitant]
     Indication: PULMONARY EMBOLISM
     Dosage: 100 mg, bid
     Route: 064
     Dates: start: 20111214, end: 20120320
  10. ASS [Concomitant]
     Indication: VENA CAVA THROMBOSIS
     Dosage: 100 mg, Unknown/D
     Route: 064
     Dates: start: 20111214, end: 20120320
  11. PANTOZOL [Concomitant]
     Indication: GASTRITIS PROPHYLAXIS
     Dosage: 40 mg, Unknown/D
     Route: 064
     Dates: start: 20110314, end: 20120320
  12. RASILEZ [Concomitant]
     Indication: HYPERTENSION
     Dosage: 300 mg, Unknown/D
     Route: 064
     Dates: start: 20111214, end: 20120117
  13. NOVAMINSULFON [Concomitant]
     Indication: PAIN
     Dosage: UNK
     Route: 064

REACTIONS (2)
  - Ventricular septal defect [Unknown]
  - Truncus arteriosus persistent [Unknown]
